FAERS Safety Report 11889844 (Version 3)
Quarter: 2016Q1

REPORT INFORMATION
  Report Type: Spontaneous
  Country: DK (occurrence: JP)
  Receive Date: 20160105
  Receipt Date: 20160218
  Transmission Date: 20160526
  Serious: Yes (Hospitalization)
  Sender: FDA-Public Use
  Company Number: JP-FRI-1000081968

PATIENT
  Age: 57 Year
  Sex: Female

DRUGS (4)
  1. MYSLEE [Concomitant]
     Active Substance: ZOLPIDEM TARTRATE
     Indication: INSOMNIA
     Dosage: 5 MG
     Route: 048
     Dates: start: 20151109, end: 20151126
  2. MELEX [Concomitant]
     Indication: PALPITATIONS
     Dosage: 0.5 MG
     Route: 048
     Dates: start: 20151109, end: 20151126
  3. LEXAPRO [Suspect]
     Active Substance: ESCITALOPRAM OXALATE
     Indication: DEPRESSION
     Dosage: 10 MG
     Route: 048
     Dates: start: 20151121, end: 20151126
  4. SAIKOKARYUKOTSUBOREITO [Concomitant]
     Active Substance: HERBALS
     Indication: ASTHENIA
     Route: 048
     Dates: start: 20151109, end: 20151126

REACTIONS (1)
  - Activation syndrome [Recovered/Resolved]

NARRATIVE: CASE EVENT DATE: 20151122
